FAERS Safety Report 16310743 (Version 2)
Quarter: 2021Q1

REPORT INFORMATION
  Report Type: Spontaneous
  Country: US (occurrence: US)
  Receive Date: 20190514
  Receipt Date: 20210227
  Transmission Date: 20210419
  Serious: Yes (Death, Other)
  Sender: FDA-Public Use
  Company Number: US-ASTRAZENECA-2019SE66851

PATIENT
  Age: 64 Year
  Sex: Female
  Weight: 72.6 kg

DRUGS (53)
  1. TAMARACK [Concomitant]
     Active Substance: LARIX OCCIDENTALIS POLLEN
     Indication: ANTIINFLAMMATORY THERAPY
     Dosage: ON OCCASION
  2. ROLAIDS [Concomitant]
     Active Substance: CALCIUM CARBONATE\MAGNESIUM HYDROXIDE
     Dosage: OCCASIONALLY AS NEEDED
     Dates: start: 20110722
  3. COLCRYS [Concomitant]
     Active Substance: COLCHICINE
     Dates: start: 20120705
  4. MIRTAZAPINE. [Concomitant]
     Active Substance: MIRTAZAPINE
     Dates: start: 20121228
  5. METHOCARBAM [Concomitant]
     Active Substance: METHOCARBAMOL
  6. LEVOFLOXACIN. [Concomitant]
     Active Substance: LEVOFLOXACIN
     Dates: start: 20160421
  7. NEXIUM [Suspect]
     Active Substance: ESOMEPRAZOLE MAGNESIUM
     Indication: GASTROOESOPHAGEAL REFLUX DISEASE
     Route: 048
  8. PRILOSEC [Suspect]
     Active Substance: OMEPRAZOLE MAGNESIUM
     Indication: GASTROOESOPHAGEAL REFLUX DISEASE
     Route: 048
     Dates: end: 2016
  9. PROTONIX [Suspect]
     Active Substance: PANTOPRAZOLE SODIUM
     Indication: GASTROOESOPHAGEAL REFLUX DISEASE
     Route: 065
     Dates: end: 2016
  10. PROMETH/CODEINE [Concomitant]
     Active Substance: CODEINE\PROMETHAZINE
     Dates: start: 20120612
  11. VENLAFAXINE [Concomitant]
     Active Substance: VENLAFAXINE HYDROCHLORIDE
     Dates: start: 20120705
  12. SUCRALFATE. [Concomitant]
     Active Substance: SUCRALFATE
     Dates: start: 20120815
  13. RISPERIDONE. [Concomitant]
     Active Substance: RISPERIDONE
     Dates: start: 20131229
  14. CRESTOR [Concomitant]
     Active Substance: ROSUVASTATIN CALCIUM
     Dates: start: 20131229
  15. PRILOSEC [Suspect]
     Active Substance: OMEPRAZOLE MAGNESIUM
     Indication: GASTROOESOPHAGEAL REFLUX DISEASE
     Dosage: GENERIC40.0MG UNKNOWN
     Route: 065
     Dates: start: 20121218
  16. FUROSEMIDE. [Concomitant]
     Active Substance: FUROSEMIDE
     Dates: end: 20160622
  17. FAMOTIDINE. [Concomitant]
     Active Substance: FAMOTIDINE
  18. TUMS [Concomitant]
     Active Substance: CALCIUM CARBONATE
     Dosage: OCCASIONALLY AS NEEDED
  19. ULORIC [Concomitant]
     Active Substance: FEBUXOSTAT
     Dates: start: 20120705
  20. METHYLPREDNISOLONE. [Concomitant]
     Active Substance: METHYLPREDNISOLONE
     Dates: start: 20150806
  21. NEXIUM [Suspect]
     Active Substance: ESOMEPRAZOLE MAGNESIUM
     Indication: GASTROOESOPHAGEAL REFLUX DISEASE
     Route: 048
     Dates: start: 20141216
  22. PRILOSEC [Suspect]
     Active Substance: OMEPRAZOLE MAGNESIUM
     Indication: GASTROOESOPHAGEAL REFLUX DISEASE
     Route: 048
     Dates: end: 2016
  23. PREVACID [Suspect]
     Active Substance: LANSOPRAZOLE
     Indication: GASTROOESOPHAGEAL REFLUX DISEASE
     Route: 065
     Dates: end: 2016
  24. DEXILANT [Suspect]
     Active Substance: DEXLANSOPRAZOLE
     Indication: GASTROOESOPHAGEAL REFLUX DISEASE
     Route: 065
     Dates: end: 2016
  25. MULTI?VITAMINS [Concomitant]
     Indication: DIABETES MELLITUS
     Dosage: DAILY
  26. LEVEMIR [Concomitant]
     Active Substance: INSULIN DETEMIR
     Dates: start: 20120612
  27. SYMBICORT [Concomitant]
     Active Substance: BUDESONIDE\FORMOTEROL FUMARATE DIHYDRATE
     Dates: start: 20121228
  28. CALCITRIOL. [Concomitant]
     Active Substance: CALCITRIOL
     Dates: start: 20121228
  29. NEXIUM [Suspect]
     Active Substance: ESOMEPRAZOLE MAGNESIUM
     Indication: GASTROOESOPHAGEAL REFLUX DISEASE
     Route: 048
  30. PREVACID [Suspect]
     Active Substance: LANSOPRAZOLE
     Indication: GASTROOESOPHAGEAL REFLUX DISEASE
     Route: 065
     Dates: end: 2016
  31. PROTONIX [Suspect]
     Active Substance: PANTOPRAZOLE SODIUM
     Indication: GASTROOESOPHAGEAL REFLUX DISEASE
     Route: 065
     Dates: end: 2016
  32. TAMARACK [Concomitant]
     Active Substance: LARIX OCCIDENTALIS POLLEN
     Indication: ROUTINE HEALTH MAINTENANCE
     Dosage: ON OCCASION
  33. METOPROLOL. [Concomitant]
     Active Substance: METOPROLOL
     Dates: start: 20120705
  34. PROAIR HFA [Concomitant]
     Active Substance: ALBUTEROL SULFATE
     Dates: start: 20121019
  35. PRADAXA [Concomitant]
     Active Substance: DABIGATRAN ETEXILATE MESYLATE
     Dates: start: 20150810
  36. NEXIUM [Suspect]
     Active Substance: ESOMEPRAZOLE MAGNESIUM
     Indication: GASTROOESOPHAGEAL REFLUX DISEASE
     Route: 048
     Dates: start: 20141216
  37. PRILOSEC [Suspect]
     Active Substance: OMEPRAZOLE MAGNESIUM
     Indication: GASTROOESOPHAGEAL REFLUX DISEASE
     Dosage: GENERIC40.0MG UNKNOWN
     Route: 065
     Dates: end: 2016
  38. PRILOSEC [Suspect]
     Active Substance: OMEPRAZOLE MAGNESIUM
     Indication: GASTROOESOPHAGEAL REFLUX DISEASE
     Dosage: GENERIC40.0MG UNKNOWN
     Route: 065
     Dates: start: 20110722
  39. RANITIDINE. [Concomitant]
     Active Substance: RANITIDINE
     Dosage: GENERIC
     Dates: start: 20110722
  40. HYDROCO/ACETAM [Concomitant]
     Dates: start: 20120705
  41. OLANZAPINE. [Concomitant]
     Active Substance: OLANZAPINE
     Dates: start: 20121228
  42. AZITHROMYCIN ANHYDROUS. [Concomitant]
     Active Substance: AZITHROMYCIN ANHYDROUS
     Dates: start: 20150806
  43. MEXILETINE [Concomitant]
     Active Substance: MEXILETINE
     Dates: start: 20160421
  44. CARVEDILOL. [Concomitant]
     Active Substance: CARVEDILOL
     Dates: start: 20160421
  45. PRILOSEC [Suspect]
     Active Substance: OMEPRAZOLE MAGNESIUM
     Indication: GASTROOESOPHAGEAL REFLUX DISEASE
     Dosage: GENERIC40.0MG UNKNOWN
     Route: 065
     Dates: start: 20121218
  46. PRILOSEC [Suspect]
     Active Substance: OMEPRAZOLE MAGNESIUM
     Indication: GASTROOESOPHAGEAL REFLUX DISEASE
     Dosage: GENERIC40.0MG UNKNOWN
     Route: 065
     Dates: start: 20110722
  47. DEXILANT [Suspect]
     Active Substance: DEXLANSOPRAZOLE
     Indication: GASTROOESOPHAGEAL REFLUX DISEASE
     Route: 065
     Dates: end: 2016
  48. LOSARTAN. [Concomitant]
     Active Substance: LOSARTAN
     Dates: start: 20121018
  49. PRILOSEC [Suspect]
     Active Substance: OMEPRAZOLE MAGNESIUM
     Indication: GASTROOESOPHAGEAL REFLUX DISEASE
     Dosage: GENERIC40.0MG UNKNOWN
     Route: 065
     Dates: end: 2016
  50. FENTANYL. [Concomitant]
     Active Substance: FENTANYL
     Dates: start: 20120303
  51. DIGOXIN. [Concomitant]
     Active Substance: DIGOXIN
     Dates: start: 20120704
  52. GABAPENTIN. [Concomitant]
     Active Substance: GABAPENTIN
     Dates: start: 20120704
  53. LISINOPRIL. [Concomitant]
     Active Substance: LISINOPRIL
     Dates: start: 20160421

REACTIONS (5)
  - Pulmonary hypertension [Fatal]
  - Chronic kidney disease [Not Recovered/Not Resolved]
  - Cardiac failure congestive [Fatal]
  - Acute kidney injury [Not Recovered/Not Resolved]
  - End stage renal disease [Not Recovered/Not Resolved]

NARRATIVE: CASE EVENT DATE: 2009
